FAERS Safety Report 6186607-2 (Version None)
Quarter: 2009Q2

REPORT INFORMATION
  Report Type: 
  Country: None (occurrence: None)
  Receive Date: 20090507
  Receipt Date: 20090507
  Transmission Date: 20091009
  Serious: Yes (Life-Threatening, Disabling, Other)
  Sender: FDA-Public Use
  Company Number: None

PATIENT
  Age: 43 Year
  Sex: Female
  Weight: 48.5349 kg

DRUGS (1)
  1. WELLBUTRIN [Suspect]
     Indication: FIBROMYALGIA
     Dosage: 300 MG DAILY
     Dates: start: 20090220, end: 20090302

REACTIONS (5)
  - AGGRESSION [None]
  - AMNESIA [None]
  - PSYCHOTIC DISORDER [None]
  - SELF INJURIOUS BEHAVIOUR [None]
  - SUICIDAL BEHAVIOUR [None]
